FAERS Safety Report 10956992 (Version 3)
Quarter: 2015Q2

REPORT INFORMATION
  Report Type: Spontaneous
  Country: US (occurrence: US)
  Receive Date: 20150326
  Receipt Date: 20150608
  Transmission Date: 20150821
  Serious: No
  Sender: FDA-Public Use
  Company Number: US-PFIZER INC-2015084035

PATIENT
  Age: 62 Year
  Sex: Female

DRUGS (5)
  1. LIPITOR [Suspect]
     Active Substance: ATORVASTATIN CALCIUM
     Indication: BLOOD CHOLESTEROL
     Dosage: 10 MG, UNK
  2. BIAXIN [Suspect]
     Active Substance: CLARITHROMYCIN
     Indication: INFLUENZA
     Dosage: UNK
  3. VYTORIN [Suspect]
     Active Substance: EZETIMIBE\SIMVASTATIN
     Indication: BLOOD CHOLESTEROL
     Dosage: (EZETIMIBE 10 MG/SIMVASTATIN 10 MG),
  4. PREVACID [Suspect]
     Active Substance: LANSOPRAZOLE
     Indication: GASTROOESOPHAGEAL REFLUX DISEASE
     Dosage: UNK
  5. LIMBITROL [Suspect]
     Active Substance: AMITRIPTYLINE\CHLORDIAZEPOXIDE
     Indication: NEURALGIA
     Dosage: UNK

REACTIONS (4)
  - Drug hypersensitivity [Recovered/Resolved]
  - Gastrointestinal pain [Recovered/Resolved]
  - Myalgia [Recovered/Resolved]
  - Abdominal discomfort [Unknown]
